FAERS Safety Report 9116942 (Version 1)
Quarter: 2013Q1

REPORT INFORMATION
  Report Type: Spontaneous
  Country: US (occurrence: US)
  Receive Date: 20130225
  Receipt Date: 20130225
  Transmission Date: 20140127
  Serious: No
  Sender: FDA-Public Use
  Company Number: US-PFIZER INC-2013067250

PATIENT
  Age: 56 Year
  Sex: Female
  Weight: 70.3 kg

DRUGS (11)
  1. PRISTIQ [Suspect]
     Indication: DEPRESSION
     Dosage: 50 MG, UNK
     Route: 048
     Dates: start: 2010
  2. PRISTIQ [Suspect]
     Indication: AFFECTIVE DISORDER
  3. BACLOFEN [Concomitant]
     Indication: FIBROMYALGIA
     Dosage: UNK
  4. TRAMADOL [Concomitant]
     Indication: FIBROMYALGIA
     Dosage: UNK
  5. KLONOPIN [Concomitant]
     Indication: ANXIETY
     Dosage: UNK
  6. ESGIC-PLUS [Concomitant]
     Indication: MIGRAINE
     Dosage: UNK
  7. SEROQUEL [Concomitant]
     Indication: PSYCHOTIC DISORDER
     Dosage: UNK
  8. DEPAKOTE [Concomitant]
     Dosage: UNK
  9. TOPAMAX [Concomitant]
     Dosage: UNK
  10. PROVIGIL [Concomitant]
     Dosage: UNK
  11. REQUIP [Concomitant]
     Dosage: UNK

REACTIONS (1)
  - Nausea [Recovered/Resolved]
